FAERS Safety Report 5825558-7 (Version None)
Quarter: 2008Q3

REPORT INFORMATION
  Report Type: 
  Country: None (occurrence: None)
  Receive Date: 20080729
  Receipt Date: 20080722
  Transmission Date: 20090109
  Serious: Yes (Other)
  Sender: FDA-Public Use
  Company Number: US-AMGEN-QUU296411

PATIENT
  Sex: Male

DRUGS (1)
  1. NEUPOGEN [Suspect]
     Indication: DRUG USE FOR UNKNOWN INDICATION
     Dates: start: 20080717

REACTIONS (6)
  - DYSPHAGIA [None]
  - EYE SWELLING [None]
  - HYPERSENSITIVITY [None]
  - LIP SWELLING [None]
  - PRURITUS [None]
  - RASH PRURITIC [None]
